FAERS Safety Report 9205217 (Version 1)
Quarter: 2013Q2

REPORT INFORMATION
  Report Type: Spontaneous
  Country: DE (occurrence: DE)
  Receive Date: 20130402
  Receipt Date: 20130402
  Transmission Date: 20140414
  Serious: Yes (Other)
  Sender: FDA-Public Use
  Company Number: DE-CELGENEUS-062-21660-13033527

PATIENT
  Sex: 0

DRUGS (2)
  1. ABRAXANE [Suspect]
     Indication: NASOPHARYNGEAL CANCER
     Route: 050
     Dates: start: 201209, end: 201302
  2. BONDRONATE [Concomitant]
     Indication: NASOPHARYNGEAL CANCER
     Route: 065
     Dates: start: 201209, end: 201302

REACTIONS (2)
  - Metastases to liver [Unknown]
  - Metastases to lymph nodes [Unknown]
